FAERS Safety Report 9096154 (Version 1)
Quarter: 2013Q1

REPORT INFORMATION
  Report Type: Spontaneous
  Country: DE (occurrence: DE)
  Receive Date: 20130207
  Receipt Date: 20130207
  Transmission Date: 20140127
  Serious: Yes (Other)
  Sender: FDA-Public Use
  Company Number: DE-ASTRAZENECA-2013SE06926

PATIENT
  Sex: 0

DRUGS (3)
  1. ROPIVACAINE [Suspect]
     Dosage: 5 ML/H
     Route: 053
  2. SUFENTANIL [Suspect]
     Dosage: 0.5-1 UG/ML
     Route: 053
  3. DISOPRIVAN [Concomitant]
     Dosage: 4-6 MG/KG/H
     Route: 042

REACTIONS (1)
  - Respiratory failure [Unknown]
